FAERS Safety Report 18393255 (Version 2)
Quarter: 2020Q4

REPORT INFORMATION
  Report Type: Report from Study
  Country: ES (occurrence: ES)
  Receive Date: 20201016
  Receipt Date: 20201104
  Transmission Date: 20210114
  Serious: Yes (Other)
  Sender: FDA-Public Use
  Company Number: ES-SA-2020SA290187

PATIENT

DRUGS (14)
  1. ONDANSETRON [Concomitant]
     Active Substance: ONDANSETRON
     Indication: COVID-19
     Dosage: UNK
     Route: 042
     Dates: start: 20201010
  2. FAMOTIDINA [Concomitant]
     Indication: COVID-19
     Dosage: UNK
     Route: 048
     Dates: start: 20201009
  3. CARVEDILOL. [Concomitant]
     Active Substance: CARVEDILOL
     Indication: COVID-19
     Dosage: UNK
     Route: 048
  4. DEXAMETASONA [DEXAMETHASONE] [Concomitant]
     Active Substance: DEXAMETHASONE
     Indication: COVID-19
     Dosage: UNK
     Route: 048
     Dates: start: 202010
  5. REMDESIVIR. [Concomitant]
     Active Substance: REMDESIVIR
     Indication: COVID-19
     Dosage: UNK
     Route: 042
     Dates: start: 20200910
  6. AZITROMICINA [Concomitant]
     Active Substance: AZITHROMYCIN DIHYDRATE
     Indication: COVID-19
     Dosage: UNK
     Route: 048
     Dates: start: 20201009, end: 20201012
  7. PRAVASTATIN. [Concomitant]
     Active Substance: PRAVASTATIN
     Indication: PROPHYLAXIS
     Dosage: UNK
     Route: 048
     Dates: start: 20201003
  8. AMBROXOL [Concomitant]
     Active Substance: AMBROXOL
     Indication: COVID-19
     Dosage: UNK
     Route: 048
     Dates: start: 20201009
  9. HIBOR [Concomitant]
     Indication: ANTICOAGULANT THERAPY
     Dosage: UNK
     Route: 058
     Dates: start: 20201009
  10. SARILUMAB [Suspect]
     Active Substance: SARILUMAB
     Indication: COVID-19
     Dosage: 200 MG, 1X
     Route: 042
     Dates: start: 20201013, end: 20201013
  11. LORAZEPAM. [Concomitant]
     Active Substance: LORAZEPAM
     Indication: PROPHYLAXIS
     Dosage: UNK
     Route: 048
     Dates: start: 20201009
  12. ULTRA LEVURE [Concomitant]
     Active Substance: SACCHAROMYCES CEREVISIAE
     Indication: COVID-19
     Dosage: UNK
     Route: 048
     Dates: start: 20201010
  13. CEFTRIAXONE. [Concomitant]
     Active Substance: CEFTRIAXONE
     Indication: COVID-19
     Dosage: UNK
     Route: 042
     Dates: start: 20201009, end: 20201012
  14. PANTOPRAZOLE [Concomitant]
     Active Substance: PANTOPRAZOLE
     Indication: COVID-19
     Dosage: UNK
     Route: 042
     Dates: start: 20201013

REACTIONS (1)
  - Neutrophil count decreased [Recovered/Resolved]

NARRATIVE: CASE EVENT DATE: 20201014
